FAERS Safety Report 15166898 (Version 1)
Quarter: 2018Q3

REPORT INFORMATION
  Report Type: Spontaneous
  Country: GB (occurrence: FR)
  Receive Date: 20180719
  Receipt Date: 20180719
  Transmission Date: 20181010
  Serious: Yes (Life-Threatening)
  Sender: FDA-Public Use
  Company Number: FR-FRESENIUS KABI-FK201807871

PATIENT
  Age: 36 Year
  Sex: Female
  Weight: 53 kg

DRUGS (3)
  1. CELOCURINE (SUXAMETHONIUM CHLORIDE) [Suspect]
     Active Substance: SUCCINYLCHOLINE CHLORIDE
     Indication: GENERAL ANAESTHESIA
     Route: 042
     Dates: start: 20170225, end: 20170225
  2. SUFENTANIL MYLAN [Suspect]
     Active Substance: SUFENTANIL
     Indication: GENERAL ANAESTHESIA
     Route: 042
     Dates: start: 20170225, end: 20170225
  3. PROPOFOL (MANUFACTURER UNKNOWN) [Suspect]
     Active Substance: PROPOFOL
     Indication: GENERAL ANAESTHESIA
     Route: 042
     Dates: start: 20170225, end: 20170225

REACTIONS (1)
  - Anaphylactic shock [Recovered/Resolved]

NARRATIVE: CASE EVENT DATE: 20170225
